FAERS Safety Report 18150254 (Version 1)
Quarter: 2020Q3

REPORT INFORMATION
  Report Type: Spontaneous
  Country: US (occurrence: US)
  Receive Date: 20200813
  Receipt Date: 20200813
  Transmission Date: 20201103
  Serious: Yes (Hospitalization)
  Sender: FDA-Public Use
  Company Number: None

PATIENT
  Sex: Female

DRUGS (1)
  1. REBIF [Suspect]
     Active Substance: INTERFERON BETA-1A
     Indication: MULTIPLE SCLEROSIS
     Route: 058
     Dates: start: 20200327

REACTIONS (7)
  - Depression [None]
  - Pain [None]
  - Sensory disturbance [None]
  - Bladder disorder [None]
  - Cognitive disorder [None]
  - Multiple sclerosis [None]
  - Mobility decreased [None]
